FAERS Safety Report 5039002-3 (Version None)
Quarter: 2006Q2

REPORT INFORMATION
  Report Type: 
  Country: None (occurrence: None)
  Receive Date: 20060601
  Receipt Date: 20060110
  Transmission Date: 20061013
  Serious: No
  Sender: FDA-Public Use
  Company Number: 2006PV007019

PATIENT
  Age: 57 Year
  Sex: Male

DRUGS (8)
  1. BYETTA [Suspect]
     Dosage: 5 MCG;BID;SC
     Route: 058
     Dates: start: 20050101
  2. DIOVANE [Concomitant]
  3. ATENOLOL [Concomitant]
  4. PROTONIX [Concomitant]
  5. GLUCOPHAGE [Concomitant]
  6. ALLEGRA [Concomitant]
  7. CYMBALTA [Concomitant]
  8. INDOCIN [Concomitant]

REACTIONS (2)
  - INJECTION SITE INDURATION [None]
  - INJECTION SITE RASH [None]
